FAERS Safety Report 11914647 (Version 3)
Quarter: 2017Q2

REPORT INFORMATION
  Report Type: Report from Study
  Country: None (occurrence: BR)
  Receive Date: 20160113
  Receipt Date: 20170504
  Transmission Date: 20170829
  Serious: Yes (Hospitalization, Other)
  Sender: FDA-Public Use
  Company Number: BR-ABBVIE-16K-020-1535393-00

PATIENT
  Age: 67 Year
  Sex: Female
  Weight: 77 kg

DRUGS (11)
  1. VIMOVO [Concomitant]
     Active Substance: ESOMEPRAZOLE MAGNESIUM\NAPROXEN
     Indication: RHEUMATIC DISORDER
     Route: 048
     Dates: start: 2015
  2. HUMIRA [Suspect]
     Active Substance: ADALIMUMAB
     Indication: RHEUMATOID ARTHRITIS
     Route: 058
     Dates: start: 20100108
  3. DEFLAZACORT [Concomitant]
     Active Substance: DEFLAZACORT
     Indication: RHEUMATIC DISORDER
     Route: 048
     Dates: start: 2014
  4. DEFLAZACORT [Concomitant]
     Active Substance: DEFLAZACORT
     Indication: RHEUMATIC DISORDER
     Route: 048
  5. PRENEURIN [Concomitant]
     Indication: PAIN
     Route: 048
     Dates: start: 1995
  6. VARICOSS [Concomitant]
     Indication: VARICOSE VEIN
     Route: 048
     Dates: start: 2013
  7. ORGANONEURO CEREBRAL [Concomitant]
     Indication: MEMORY IMPAIRMENT
     Route: 048
     Dates: start: 201702
  8. VENLAXIN [Concomitant]
     Active Substance: VENLAFAXINE HYDROCHLORIDE
     Indication: DEPRESSION
     Route: 048
     Dates: start: 2012
  9. DONAREN [Concomitant]
     Active Substance: TRAZODONE HYDROCHLORIDE
     Indication: PRODUCT USED FOR UNKNOWN INDICATION
     Route: 048
     Dates: start: 1995
  10. VIMOVO [Concomitant]
     Active Substance: ESOMEPRAZOLE MAGNESIUM\NAPROXEN
     Indication: RHEUMATIC DISORDER
     Route: 048
  11. ESOMEPRAZOLE [Concomitant]
     Active Substance: ESOMEPRAZOLE
     Indication: PRODUCT USED FOR UNKNOWN INDICATION
     Route: 048

REACTIONS (8)
  - Pain [Not Recovered/Not Resolved]
  - Gallbladder operation [Unknown]
  - Weight increased [Unknown]
  - Haemorrhage [Recovered/Resolved]
  - Varicose vein [Recovering/Resolving]
  - Memory impairment [Not Recovered/Not Resolved]
  - Diverticulitis [Not Recovered/Not Resolved]
  - Anaemia [Not Recovered/Not Resolved]

NARRATIVE: CASE EVENT DATE: 2015
